FAERS Safety Report 5380989-7 (Version None)
Quarter: 2007Q3

REPORT INFORMATION
  Report Type: 
  Country: None (occurrence: None)
  Receive Date: 20070702
  Receipt Date: 20070118
  Transmission Date: 20080115
  Serious: Yes (Hospitalization)
  Sender: FDA-Public Use
  Company Number: SPV1-2006-02319

PATIENT
  Age: 24 Year
  Sex: Female

DRUGS (3)
  1. PENTASA [Suspect]
     Indication: COLITIS ULCERATIVE
     Dosage: 750 MG 3XS DAILY, ORAL; 1250 MG DAILY; 750 MG 3XS DAILY, ORAL
     Route: 048
     Dates: start: 20060410, end: 20060416
  2. PENTASA [Suspect]
     Indication: COLITIS ULCERATIVE
     Dosage: 750 MG 3XS DAILY, ORAL; 1250 MG DAILY; 750 MG 3XS DAILY, ORAL
     Route: 048
     Dates: start: 20060822, end: 20060825
  3. FERROUS CITRATE [Concomitant]

REACTIONS (1)
  - PANCREATITIS ACUTE [None]
